FAERS Safety Report 6325109-7 (Version None)
Quarter: 2009Q3

REPORT INFORMATION
  Report Type: 
  Country: None (occurrence: None)
  Receive Date: 20090824
  Receipt Date: 20090707
  Transmission Date: 20100115
  Serious: No
  Sender: FDA-Public Use
  Company Number: US-ABBOTT-09P-163-0583754-00

PATIENT
  Sex: Male
  Weight: 118.04 kg

DRUGS (8)
  1. NIASPAN [Suspect]
     Indication: DRUG USE FOR UNKNOWN INDICATION
     Dates: start: 20090601
  2. JANUMET [Concomitant]
     Indication: DRUG USE FOR UNKNOWN INDICATION
  3. TRICOR [Concomitant]
     Indication: DRUG USE FOR UNKNOWN INDICATION
  4. ZOCOR [Concomitant]
     Indication: DRUG USE FOR UNKNOWN INDICATION
  5. DIAVAN [Concomitant]
     Indication: DRUG USE FOR UNKNOWN INDICATION
  6. ATENOLOL [Concomitant]
     Indication: DRUG USE FOR UNKNOWN INDICATION
  7. HYDROXYCUT [Concomitant]
     Indication: DRUG USE FOR UNKNOWN INDICATION
  8. NUTRITIONAL PROTEIN SUPPLEMENTS FOR WEIGHTLIFTING [Concomitant]
     Indication: DRUG USE FOR UNKNOWN INDICATION
     Dosage: OTC

REACTIONS (2)
  - FEELING HOT [None]
  - PARAESTHESIA [None]
